FAERS Safety Report 4788283-X (Version None)
Quarter: 2005Q4

REPORT INFORMATION
  Report Type: 
  Country: None (occurrence: None)
  Receive Date: 20051003
  Receipt Date: 20050919
  Transmission Date: 20060501
  Serious: Yes (Other)
  Sender: FDA-Public Use
  Company Number: 2005130664

PATIENT
  Sex: Male
  Weight: 90.7194 kg

DRUGS (3)
  1. VIAGRA [Suspect]
     Indication: ILL-DEFINED DISORDER
     Dosage: (50 MG)
  2. SYNTHROID [Concomitant]
  3. MULTIVITAMIN [Concomitant]

REACTIONS (4)
  - CYANOPSIA [None]
  - DRUG EFFECT DECREASED [None]
  - HERNIA REPAIR [None]
  - VISION BLURRED [None]
